FAERS Safety Report 13926626 (Version 1)
Quarter: 2017Q3

REPORT INFORMATION
  Report Type: Spontaneous
  Country: US (occurrence: None)
  Receive Date: 20170831
  Receipt Date: 20170831
  Transmission Date: 20171127
  Serious: Yes (Hospitalization)
  Sender: FDA-Public Use
  Company Number: None

PATIENT
  Age: 51 Year
  Sex: Male

DRUGS (2)
  1. TRIAMCINOLONE [Suspect]
     Active Substance: TRIAMCINOLONE
     Dates: start: 20170613, end: 20170613
  2. LIDOCAINE. [Suspect]
     Active Substance: LIDOCAINE
     Dates: start: 20170613, end: 20170613

REACTIONS (11)
  - Pruritus [None]
  - Urticaria [None]
  - Syncope [None]
  - Tachycardia [None]
  - Wheezing [None]
  - Nausea [None]
  - Oxygen saturation decreased [None]
  - Chills [None]
  - Vomiting [None]
  - Hypotension [None]
  - Troponin increased [None]

NARRATIVE: CASE EVENT DATE: 20170614
